FAERS Safety Report 4289625-4 (Version None)
Quarter: 2004Q1

REPORT INFORMATION
  Report Type: 
  Country: None (occurrence: None)
  Receive Date: 20040126
  Receipt Date: 20030930
  Transmission Date: 20041129
  Serious: No
  Sender: FDA-Public Use
  Company Number: USA031048705

PATIENT
  Age: 54 Year
  Sex: Female

DRUGS (1)
  1. FORTEO [Suspect]
     Dates: start: 20030919

REACTIONS (3)
  - FLATULENCE [None]
  - LABORATORY TEST ABNORMAL [None]
  - PAIN EXACERBATED [None]
